FAERS Safety Report 22825990 (Version 2)
Quarter: 2023Q4

REPORT INFORMATION
  Report Type: Spontaneous
  Country: TW (occurrence: TW)
  Receive Date: 20230816
  Receipt Date: 20231101
  Transmission Date: 20240110
  Serious: Yes (Other)
  Sender: FDA-Public Use
  Company Number: TW-002147023-NVSC2023TW161386

PATIENT
  Age: 67 Year
  Sex: Male

DRUGS (8)
  1. NEVANAC [Suspect]
     Active Substance: NEPAFENAC
     Indication: Antiinflammatory therapy
     Dosage: 1 DROP, QID
     Route: 047
     Dates: start: 20230704, end: 20230710
  2. NEVANAC [Suspect]
     Active Substance: NEPAFENAC
     Dosage: 1 DROP, QID
     Route: 047
     Dates: start: 20230801
  3. TOBRADEX [Suspect]
     Active Substance: DEXAMETHASONE\TOBRAMYCIN
     Indication: Antiinflammatory therapy
     Dosage: 1 DROP, QID
     Route: 047
     Dates: start: 20230704, end: 20230710
  4. TOBRADEX [Suspect]
     Active Substance: DEXAMETHASONE\TOBRAMYCIN
     Dosage: 1 DROP, QID
     Route: 047
     Dates: start: 20230801
  5. VIGAMOX [Suspect]
     Active Substance: MOXIFLOXACIN HYDROCHLORIDE
     Indication: Antiinflammatory therapy
     Dosage: 1 DROP, QID
     Route: 047
     Dates: start: 20230704, end: 20230710
  6. VIGAMOX [Suspect]
     Active Substance: MOXIFLOXACIN HYDROCHLORIDE
     Dosage: 1 DROP, QID
     Route: 047
     Dates: start: 20230801
  7. DIAMOX SEQUELS [Concomitant]
     Active Substance: ACETAZOLAMIDE
     Indication: Antiinflammatory therapy
     Dosage: 1 DOSAGE FORM, TID
     Route: 048
     Dates: start: 20230704, end: 20230706
  8. HALOPERIDOL [Concomitant]
     Active Substance: HALOPERIDOL
     Indication: Antiinflammatory therapy
     Dosage: 1 DOSAGE FORM, TID
     Route: 048
     Dates: start: 20230704, end: 20230706

REACTIONS (6)
  - Injury corneal [Recovered/Resolved]
  - Eye irritation [Recovered/Resolved]
  - Ocular discomfort [Unknown]
  - Pain of skin [Unknown]
  - Product colour issue [Unknown]
  - Product packaging quantity issue [Unknown]

NARRATIVE: CASE EVENT DATE: 20230709
